FAERS Safety Report 9992911 (Version 1)
Quarter: 2014Q1

REPORT INFORMATION
  Report Type: Report from Study
  Country: US (occurrence: US)
  Receive Date: 20140310
  Receipt Date: 20140310
  Transmission Date: 20141002
  Serious: No
  Sender: FDA-Public Use
  Company Number: US-ABBVIE-13P-163-1165040-00

PATIENT
  Age: 44 Year
  Sex: Female
  Weight: 61.74 kg

DRUGS (6)
  1. KLONOPIN [Concomitant]
     Indication: CONVULSION
  2. LEXAPRO [Concomitant]
     Indication: ANXIETY
  3. SINGULAIR [Concomitant]
     Indication: ASTHMA
  4. LUPRON DEPOT [Suspect]
     Indication: ENDOMETRIOSIS
     Dosage: 11.25 MG/3 MONTH
     Route: 030
     Dates: start: 201307
  5. LUPRON DEPOT [Suspect]
     Route: 030
     Dates: start: 1999, end: 1999
  6. LYRICA [Concomitant]
     Indication: CONVULSION

REACTIONS (3)
  - Somnolence [Recovered/Resolved]
  - Dizziness [Recovered/Resolved]
  - Dizziness [Recovered/Resolved]
